FAERS Safety Report 6305935-0 (Version None)
Quarter: 2009Q3

REPORT INFORMATION
  Report Type: 
  Country: None (occurrence: None)
  Receive Date: 20090812
  Receipt Date: 20090731
  Transmission Date: 20100115
  Serious: Yes (Other)
  Sender: FDA-Public Use
  Company Number: US-PFIZER INC-2009233816

PATIENT
  Sex: Female

DRUGS (2)
  1. ZYVOX [Suspect]
     Indication: STAPHYLOCOCCAL INFECTION
     Dosage: UNK
     Route: 048
     Dates: start: 20090601
  2. ZYVOX [Suspect]
     Indication: SKIN INFECTION

REACTIONS (4)
  - ANAPHYLACTIC REACTION [None]
  - FACE OEDEMA [None]
  - RASH [None]
  - RESPIRATORY DISTRESS [None]
